FAERS Safety Report 7282818-3 (Version None)
Quarter: 2011Q1

REPORT INFORMATION
  Report Type: 
  Country: None (occurrence: None)
  Receive Date: 20110209
  Receipt Date: 20110201
  Transmission Date: 20110831
  Serious: No
  Sender: FDA-Public Use
  Company Number: US-BAYER-2011-011330

PATIENT
  Sex: Female

DRUGS (1)
  1. MIRENA [Suspect]
     Indication: CONTRACEPTION
     Dosage: ONE UNIT
     Route: 015
     Dates: start: 20101129

REACTIONS (6)
  - PREGNANCY WITH CONTRACEPTIVE DEVICE [None]
  - BREAST TENDERNESS [None]
  - WEIGHT INCREASED [None]
  - OVARIAN CYST [None]
  - MOOD SWINGS [None]
  - ABDOMINAL PAIN [None]
